FAERS Safety Report 5864087-1 (Version None)
Quarter: 2008Q3

REPORT INFORMATION
  Report Type: 
  Country: None (occurrence: None)
  Receive Date: 20080829
  Receipt Date: 20080821
  Transmission Date: 20090109
  Serious: Yes (Life-Threatening, Hospitalization)
  Sender: FDA-Public Use
  Company Number: US-JNJFOC-20080603010

PATIENT
  Sex: Male
  Weight: 63.05 kg

DRUGS (12)
  1. PREZISTA [Suspect]
     Route: 048
  2. PREZISTA [Suspect]
     Indication: HIV INFECTION
     Dosage: TEMPORARY STOP
     Route: 048
  3. RITONAVIR [Suspect]
     Route: 048
  4. RITONAVIR [Suspect]
     Indication: HIV INFECTION
     Dosage: TEMPORARY STOP
     Route: 048
  5. BACTRIM DS [Concomitant]
     Indication: OPPORTUNISTIC INFECTION PROPHYLAXIS
     Route: 048
  6. ZITHROMAX [Concomitant]
     Indication: OPPORTUNISTIC INFECTION PROPHYLAXIS
     Route: 048
  7. PERCOCET [Concomitant]
     Indication: ARTHRALGIA
     Route: 048
  8. RELAFEN [Concomitant]
     Indication: ARTHRALGIA
     Route: 048
  9. VALTREX [Concomitant]
     Indication: ANAL ULCER
     Route: 048
  10. VALTREX [Concomitant]
     Indication: HERPES SIMPLEX
     Route: 048
  11. ZOVIRAX [Concomitant]
     Indication: ANAL ULCER
     Route: 061
  12. ZOVIRAX [Concomitant]
     Indication: HERPES SIMPLEX
     Route: 061

REACTIONS (2)
  - DEEP VEIN THROMBOSIS [None]
  - PULMONARY EMBOLISM [None]
